FAERS Safety Report 6777976-0 (Version None)
Quarter: 2010Q2

REPORT INFORMATION
  Report Type: 
  Country: None (occurrence: None)
  Receive Date: 20100618
  Receipt Date: 20100611
  Transmission Date: 20101027
  Serious: Yes (Other)
  Sender: FDA-Public Use
  Company Number: US-BIOGENIDEC-2010BI016924

PATIENT
  Age: 39 Year
  Sex: Female
  Weight: 63 kg

DRUGS (8)
  1. TYSABRI [Suspect]
     Indication: CROHN'S DISEASE
     Route: 042
     Dates: start: 20080311, end: 20100323
  2. FERROUS SULFATE TAB [Concomitant]
     Route: 048
  3. MULTI-VITAMIN [Concomitant]
     Indication: SMALL INTESTINAL ULCER HAEMORRHAGE
  4. ERGOCALCIFEROL [Concomitant]
  5. CALCIUM CARBONATE [Concomitant]
  6. CETIRIZINE HCL [Concomitant]
  7. LOMOTIL [Concomitant]
     Route: 048
  8. CYNACOBALAMIN [Concomitant]
     Route: 030

REACTIONS (4)
  - ARTHRALGIA [None]
  - CROHN'S DISEASE [None]
  - DISBACTERIOSIS [None]
  - DRUG INEFFECTIVE [None]
